FAERS Safety Report 4482401-9 (Version None)
Quarter: 2004Q4

REPORT INFORMATION
  Report Type: 
  Country: None (occurrence: None)
  Receive Date: 20041022
  Receipt Date: 20040426
  Transmission Date: 20050328
  Serious: No
  Sender: FDA-Public Use
  Company Number: US-BRISTOL-MYERS SQUIBB COMPANY-12571204

PATIENT
  Sex: Male

DRUGS (3)
  1. BUSPAR [Suspect]
     Indication: BIPOLAR DISORDER
     Route: 048
     Dates: start: 20040301
  2. LAMICTAL [Concomitant]
  3. VALIUM [Concomitant]

REACTIONS (1)
  - RASH [None]
